FAERS Safety Report 9761358 (Version 4)
Quarter: 2014Q1

REPORT INFORMATION
  Report Type: Report from Study
  Country: TR (occurrence: TR)
  Receive Date: 20131216
  Receipt Date: 20140318
  Transmission Date: 20141002
  Serious: Yes (Hospitalization)
  Sender: FDA-Public Use
  Company Number: TR-ABBVIE-13P-161-1178955-00

PATIENT
  Age: 26 Year
  Sex: Female
  Weight: 48 kg

DRUGS (2)
  1. HUMIRA [Suspect]
     Indication: CROHN^S DISEASE
     Route: 058
     Dates: start: 20130320, end: 20131127
  2. SALOFALK [Concomitant]
     Indication: CROHN^S DISEASE
     Route: 048

REACTIONS (3)
  - Female genital tract fistula [Recovered/Resolved]
  - Colectomy total [Recovered/Resolved]
  - Drug ineffective [Not Recovered/Not Resolved]
